FAERS Safety Report 7094000-3 (Version None)
Quarter: 2010Q4

REPORT INFORMATION
  Report Type: 
  Country: None (occurrence: None)
  Receive Date: 20101110
  Receipt Date: 20101102
  Transmission Date: 20110411
  Serious: Yes (Disabling, Other)
  Sender: FDA-Public Use
  Company Number: DE-ROCHE-736112

PATIENT
  Sex: Female
  Weight: 82 kg

DRUGS (6)
  1. AVASTIN [Suspect]
     Indication: BREAST CANCER
     Dosage: UNTIL 12 NOV 2009 IN COMBINATION WITH PACLITAXEL, LATER AS MONOTHERAPY
     Route: 042
     Dates: start: 20090716, end: 20100201
  2. AVASTIN [Suspect]
     Dosage: IN THE COURSE REDUCTION OF DOSAGE TO 7.5 MG EVERY 3 WEEKS
     Route: 042
     Dates: start: 20100304, end: 20100527
  3. PACLITAXEL [Concomitant]
     Indication: BREAST CANCER
     Dosage: IN COMBINATION WITH BEVACIZUMAB, ON DAY 1, 8, 15 OF A CYCLE OF 29 DAYS
     Route: 042
     Dates: start: 20090716, end: 20091112
  4. PREDNISOLON [Concomitant]
     Indication: BREAST CANCER
     Route: 042
     Dates: start: 20091126, end: 20100527
  5. DEXAMETHASONE [Concomitant]
     Indication: BREAST CANCER
     Dosage: ON DAY 1, 8, 15 OF A CYCLE OF 29 DAYS
     Route: 042
     Dates: start: 20090716, end: 20091112
  6. ONDANSETRON [Concomitant]
     Indication: PROPHYLAXIS
     Dosage: ON DAY 1, 8, 15 OF A CYCLE OD 29 DAYS
     Route: 042
     Dates: start: 20090716, end: 20091112

REACTIONS (3)
  - APHONIA [None]
  - DYSPHONIA [None]
  - VOCAL CORD DISORDER [None]
